FAERS Safety Report 9132805 (Version 3)
Quarter: 2013Q2

REPORT INFORMATION
  Report Type: Report from Study
  Country: US (occurrence: US)
  Receive Date: 20130301
  Receipt Date: 20130514
  Transmission Date: 20140414
  Serious: Yes (Disabling, Other)
  Sender: FDA-Public Use
  Company Number: US-PFIZER INC-2011258556

PATIENT
  Age: 65 Year
  Sex: Female
  Weight: 70.3 kg

DRUGS (5)
  1. LYRICA [Suspect]
     Indication: FIBROMYALGIA
     Dosage: 50 MG, 3X/DAY
     Route: 048
     Dates: start: 201005, end: 2010
  2. LYRICA [Suspect]
     Dosage: 100 MG, 3X/DAY
     Route: 048
     Dates: start: 2010
  3. ELAVIL [Concomitant]
     Indication: BACK PAIN
     Dosage: UNK
  4. FLEXERIL [Concomitant]
     Indication: BACK PAIN
     Dosage: UNK
  5. ALLEGRA [Concomitant]
     Indication: SINUS DISORDER
     Dosage: 180 MG, UNK

REACTIONS (5)
  - Weight increased [Unknown]
  - Cardiac disorder [Unknown]
  - Ill-defined disorder [Unknown]
  - Drug ineffective [Unknown]
  - Increased appetite [Unknown]
